FAERS Safety Report 12406708 (Version 1)
Quarter: 2016Q2

REPORT INFORMATION
  Report Type: Spontaneous
  Country: FR (occurrence: FR)
  Receive Date: 20160526
  Receipt Date: 20160526
  Transmission Date: 20160815
  Serious: Yes (Hospitalization)
  Sender: FDA-Public Use
  Company Number: FR-PFIZER INC-2016265668

PATIENT
  Age: 37 Year
  Sex: Female

DRUGS (14)
  1. MIDAZOLAM [Concomitant]
     Active Substance: MIDAZOLAM\MIDAZOLAM HYDROCHLORIDE
  2. BRICANYL [Concomitant]
     Active Substance: TERBUTALINE SULFATE
  3. PERFALGAN [Concomitant]
     Active Substance: ACETAMINOPHEN
  4. INSULIN [Concomitant]
     Active Substance: INSULIN NOS
  5. CUBICIN [Suspect]
     Active Substance: DAPTOMYCIN
     Indication: SEPSIS
     Dosage: 600 MG, DAILY
     Route: 041
     Dates: start: 20160405, end: 20160413
  6. EUPANTOL [Concomitant]
     Active Substance: PANTOPRAZOLE SODIUM
  7. SOLU-MEDROL [Suspect]
     Active Substance: METHYLPREDNISOLONE SODIUM SUCCINATE
     Indication: ACUTE DISSEMINATED ENCEPHALOMYELITIS
     Dosage: 1 G, 1X/DAY
     Route: 042
     Dates: start: 20160407, end: 20160409
  8. DIPRIVAN [Concomitant]
     Active Substance: PROPOFOL
  9. ERYTHROMYCINE /00020901/ [Suspect]
     Active Substance: ERYTHROMYCIN
     Dosage: 250 MG, 1X/DAY
     Route: 042
     Dates: start: 20160403, end: 20160411
  10. SUFENTANIL [Concomitant]
     Active Substance: SUFENTANIL
  11. EUPRESSYL /00631801/ [Concomitant]
     Active Substance: URAPIDIL
  12. TYGACIL [Concomitant]
     Active Substance: TIGECYCLINE
  13. HEPARIN SODIUM. [Concomitant]
     Active Substance: HEPARIN SODIUM
  14. LOXEN /00639802/ [Concomitant]
     Active Substance: NICARDIPINE

REACTIONS (4)
  - Acidosis [Recovered/Resolved]
  - Rhabdomyolysis [Recovered/Resolved]
  - Hyperkalaemia [Recovered/Resolved]
  - Acute kidney injury [Recovered/Resolved]

NARRATIVE: CASE EVENT DATE: 201604
